FAERS Safety Report 5271212-2 (Version None)
Quarter: 2007Q1

REPORT INFORMATION
  Report Type: 
  Country: None (occurrence: None)
  Receive Date: 20061214
  Receipt Date: 20060511
  Transmission Date: 20070707
  Serious: Yes (Hospitalization, Other)
  Sender: FDA-Public Use
  Company Number: 2005088197

PATIENT
  Age: 42 Year
  Sex: Female
  Weight: 122.698 kg

DRUGS (11)
  1. BEXTRA [Suspect]
     Indication: ILL-DEFINED DISORDER
     Dates: start: 20010101
  2. LIPITOR [Concomitant]
  3. ALBUTEROL [Concomitant]
  4. ATROVENT [Concomitant]
  5. GLUCOPHAGE [Concomitant]
  6. NITROGLYCERIN [Concomitant]
  7. NEXIUM [Concomitant]
  8. TRAZODONE HCL [Concomitant]
  9. PULMICORT [Concomitant]
  10. CARAFATE [Concomitant]
  11. ALTACE [Concomitant]

REACTIONS (1)
  - MYOCARDIAL INFARCTION [None]
